FAERS Safety Report 11329806 (Version 1)
Quarter: 2015Q3

REPORT INFORMATION
  Report Type: Report from Study
  Country: CA (occurrence: CA)
  Receive Date: 20150803
  Receipt Date: 20150803
  Transmission Date: 20151125
  Serious: Yes (Hospitalization, Other)
  Sender: FDA-Public Use
  Company Number: PHHY2013CA007602

PATIENT
  Age: 49 Year
  Sex: Female

DRUGS (1)
  1. GLEEVEC [Suspect]
     Active Substance: IMATINIB MESYLATE
     Indication: GASTROINTESTINAL STROMAL TUMOUR
     Dosage: 400 MG, QD
     Route: 048
     Dates: start: 201108, end: 201309

REACTIONS (10)
  - Muscle spasms [Recovering/Resolving]
  - Peripheral swelling [Recovering/Resolving]
  - Flatulence [Unknown]
  - Blood potassium decreased [Unknown]
  - Dehydration [Unknown]
  - Metastases to liver [Unknown]
  - Chills [Unknown]
  - Oesophageal obstruction [Unknown]
  - Eye swelling [Recovering/Resolving]
  - Nausea [Unknown]

NARRATIVE: CASE EVENT DATE: 20150718
